FAERS Safety Report 24708832 (Version 2)
Quarter: 2025Q2

REPORT INFORMATION
  Report Type: Spontaneous
  Country: US (occurrence: US)
  Receive Date: 20241207
  Receipt Date: 20250610
  Transmission Date: 20250717
  Serious: No
  Sender: SANOFI AVENTIS
  Company Number: US-SA-2024SA359910

PATIENT
  Age: 47 Year
  Sex: Male

DRUGS (1)
  1. DUPIXENT [Suspect]
     Active Substance: DUPILUMAB
     Indication: Dermatitis atopic
     Dosage: 300 MG, QOW
     Route: 058
     Dates: start: 202202

REACTIONS (2)
  - Eczema [Recovering/Resolving]
  - Rash [Recovering/Resolving]

NARRATIVE: CASE EVENT DATE: 20241101
